FAERS Safety Report 18801139 (Version 1)
Quarter: 2021Q1

REPORT INFORMATION
  Report Type: Spontaneous
  Country: US (occurrence: US)
  Receive Date: 20210128
  Receipt Date: 20210128
  Transmission Date: 20210419
  Serious: No
  Sender: FDA-Public Use
  Company Number: US-ELI_LILLY_AND_COMPANY-US202101011562

PATIENT
  Age: 43 Year
  Sex: Female

DRUGS (2)
  1. REYVOW [Concomitant]
     Active Substance: LASMIDITAN
     Indication: MIGRAINE
     Dosage: 200 MG, PRN
     Route: 065
  2. EMGALITY [Suspect]
     Active Substance: GALCANEZUMAB-GNLM
     Indication: MIGRAINE
     Dosage: 120 MG, MONTHLY (1/M)
     Route: 058

REACTIONS (1)
  - Injection site erythema [Unknown]
